FAERS Safety Report 13803860 (Version 1)
Quarter: 2017Q3

REPORT INFORMATION
  Report Type: Spontaneous
  Country: US (occurrence: US)
  Receive Date: 20170728
  Receipt Date: 20170728
  Transmission Date: 20171127
  Serious: No
  Sender: FDA-Public Use
  Company Number: US-ABBVIE-16P-163-1769434-00

PATIENT
  Sex: Female

DRUGS (1)
  1. SYNTHROID [Suspect]
     Active Substance: LEVOTHYROXINE SODIUM
     Indication: PRODUCT USED FOR UNKNOWN INDICATION
     Route: 048

REACTIONS (7)
  - Salivary gland enlargement [Unknown]
  - Mouth swelling [Unknown]
  - Pain [Unknown]
  - Swelling [Unknown]
  - Product colour issue [Unknown]
  - Asthenia [Unknown]
  - Drug ineffective [Unknown]
